FAERS Safety Report 6206005-2 (Version None)
Quarter: 2009Q2

REPORT INFORMATION
  Report Type: 
  Country: None (occurrence: None)
  Receive Date: 20090528
  Receipt Date: 20090515
  Transmission Date: 20091009
  Serious: Yes (Other)
  Sender: FDA-Public Use
  Company Number: FI-JNJFOC-20090205390

PATIENT
  Age: 47 Year
  Sex: Female

DRUGS (4)
  1. REMICADE [Suspect]
     Indication: MYALGIA
     Route: 042
  2. METHOTREXATE [Concomitant]
     Route: 048
  3. OXIKLORIN [Concomitant]
  4. MEASLES, MUMPS AND RUBELLA VACCINE [Concomitant]

REACTIONS (3)
  - ALOPECIA [None]
  - OCULAR VASCULITIS [None]
  - VISUAL IMPAIRMENT [None]
